FAERS Safety Report 6242037-6 (Version None)
Quarter: 2009Q2

REPORT INFORMATION
  Report Type: 
  Country: None (occurrence: None)
  Receive Date: 20090623
  Receipt Date: 20090617
  Transmission Date: 20091009
  Serious: Yes (Death, Hospitalization, Other)
  Sender: FDA-Public Use
  Company Number: PHHY2009BR23665

PATIENT
  Sex: Male

DRUGS (3)
  1. DIOVAN [Suspect]
     Indication: HYPERTENSION
     Dosage: 1 TABLET A DAY
     Route: 048
     Dates: start: 20081001
  2. METFORMIN HYDROCHLORIDE [Concomitant]
     Indication: DIABETES MELLITUS
     Dosage: 2 TABLETS A DAY
     Route: 048
     Dates: start: 20081201
  3. AAS [Concomitant]
     Indication: ANGIOPATHY
     Dosage: 1 TABLET AT LUNCH
     Route: 048

REACTIONS (7)
  - BILE DUCT OBSTRUCTION [None]
  - CHOLELITHIASIS [None]
  - DIABETES MELLITUS [None]
  - OCULAR ICTERUS [None]
  - PANCREATIC CARCINOMA [None]
  - SURGERY [None]
  - YELLOW SKIN [None]
